FAERS Safety Report 4530909-X (Version None)
Quarter: 2004Q4

REPORT INFORMATION
  Report Type: 
  Country: None (occurrence: None)
  Receive Date: 20041215
  Receipt Date: 20041202
  Transmission Date: 20050328
  Serious: Yes (Life-Threatening, Hospitalization)
  Sender: FDA-Public Use
  Company Number: 2004105294

PATIENT
  Age: 46 Year
  Sex: Female
  Weight: 62.1 kg

DRUGS (11)
  1. AZULFIDINE EN-TABS [Suspect]
     Indication: RHEUMATOID ARTHRITIS
     Dosage: 1000 MG (500 MG, 1 IN 2 D), ORAL
     Route: 048
     Dates: start: 20040830, end: 20040927
  2. ETIZOLAM (ETIZOLAM) [Concomitant]
  3. TRIAZOLAM [Concomitant]
  4. SULINDAC [Concomitant]
  5. TEPRENONE  (TEPRENONE) [Concomitant]
  6. ORGAN LYSATE, STANDARDIZED (ORGAN LYSATE, STANDARDIZED) [Concomitant]
  7. PREDNISOLONE [Concomitant]
  8. MISOPROSTOL [Concomitant]
  9. ATORVASTATIN (ATORVASTATIN) [Concomitant]
  10. CARDIOVASCULAR SYSTEM DRUGS (CARDIOVASCULAR SYSTEM DRUGS) [Concomitant]
  11. TRICHLORMETHIAZIDE [Concomitant]

REACTIONS (11)
  - ABDOMINAL MASS [None]
  - ABDOMINAL PAIN [None]
  - COUGH [None]
  - DIARRHOEA [None]
  - ERYTHEMA [None]
  - HYPERSENSITIVITY [None]
  - LIVER DISORDER [None]
  - LYMPHADENOPATHY [None]
  - MALAISE [None]
  - PYREXIA [None]
  - RENAL DISORDER [None]
